FAERS Safety Report 22110554 (Version 3)
Quarter: 2023Q2

REPORT INFORMATION
  Report Type: Spontaneous
  Country: None (occurrence: US)
  Receive Date: 20230317
  Receipt Date: 20230622
  Transmission Date: 20230722
  Serious: No
  Sender: FDA-Public Use
  Company Number: US-Graviti Pharmaceuticals Private Limited-2139205

PATIENT
  Age: 58 Year
  Sex: Female
  Weight: 65.909 kg

DRUGS (2)
  1. GABAPENTIN [Suspect]
     Active Substance: GABAPENTIN
     Indication: Migraine
     Route: 048
  2. MELOXICAM [Concomitant]
     Active Substance: MELOXICAM
     Route: 065

REACTIONS (3)
  - Drug ineffective for unapproved indication [Unknown]
  - Suspected product quality issue [Unknown]
  - Intentional product use issue [Unknown]
